FAERS Safety Report 11800286 (Version 2)
Quarter: 2016Q1

REPORT INFORMATION
  Report Type: Report from Study
  Country: GB (occurrence: GB)
  Receive Date: 20151203
  Receipt Date: 20160108
  Transmission Date: 20160525
  Serious: Yes (Hospitalization, Other)
  Sender: FDA-Public Use
  Company Number: GB-AMGEN-GBRSL2015127139

PATIENT
  Age: 36 Year
  Sex: Female

DRUGS (1)
  1. ARANESP [Suspect]
     Active Substance: DARBEPOETIN ALFA
     Indication: PRODUCT USED FOR UNKNOWN INDICATION
     Dosage: 60 MUG, UNK
     Route: 065

REACTIONS (2)
  - Hospitalisation [Not Recovered/Not Resolved]
  - Haemodialysis [Not Recovered/Not Resolved]

NARRATIVE: CASE EVENT DATE: 2015
